FAERS Safety Report 10518605 (Version 1)
Quarter: 2014Q4

REPORT INFORMATION
  Report Type: Report from Study
  Country: DE (occurrence: DE)
  Receive Date: 20141015
  Receipt Date: 20141015
  Transmission Date: 20150528
  Serious: Yes (Other)
  Sender: FDA-Public Use
  Company Number: DE-LEO PHARMA-224785

PATIENT
  Age: 70 Year
  Sex: Female
  Weight: 72 kg

DRUGS (1)
  1. PICATO [Suspect]
     Active Substance: INGENOL MEBUTATE
     Indication: CARCINOMA IN SITU
     Route: 061
     Dates: start: 20130923, end: 20130925

REACTIONS (2)
  - Herpes zoster [Recovered/Resolved with Sequelae]
  - Product use issue [Recovered/Resolved with Sequelae]

NARRATIVE: CASE EVENT DATE: 20131009
